FAERS Safety Report 9893719 (Version 2)
Quarter: 2014Q3

REPORT INFORMATION
  Report Type: Spontaneous
  Country: US (occurrence: US)
  Receive Date: 20140213
  Receipt Date: 20140901
  Transmission Date: 20150326
  Serious: Yes (Other)
  Sender: FDA-Public Use
  Company Number: US-009507513-1402USA005093

PATIENT
  Sex: Female
  Weight: 69.62 kg

DRUGS (1)
  1. NUVARING [Suspect]
     Active Substance: ETHINYL ESTRADIOL\ETONOGESTREL
     Indication: PRODUCT USED FOR UNKNOWN INDICATION
     Dosage: 0.12-0.015 MG/24 HR
     Route: 067
     Dates: end: 20131001

REACTIONS (11)
  - Goitre [Unknown]
  - Appendicectomy [Unknown]
  - Malaise [Unknown]
  - Rhinitis allergic [Unknown]
  - Metrorrhagia [Unknown]
  - Pulmonary embolism [Unknown]
  - Pain in extremity [Unknown]
  - Tinea versicolour [Unknown]
  - Psoriasis [Not Recovered/Not Resolved]
  - Vitamin D deficiency [Unknown]
  - Fatigue [Unknown]

NARRATIVE: CASE EVENT DATE: 20080502
